FAERS Safety Report 17441339 (Version 1)
Quarter: 2020Q1

REPORT INFORMATION
  Report Type: Spontaneous
  Country: US (occurrence: US)
  Receive Date: 20200220
  Receipt Date: 20200220
  Transmission Date: 20200409
  Serious: No
  Sender: FDA-Public Use
  Company Number: US-IPSEN BIOPHARMACEUTICALS, INC.-2020-03362

PATIENT
  Age: 68 Year
  Sex: Male

DRUGS (3)
  1. SOMATULINE DEPOT [Suspect]
     Active Substance: LANREOTIDE ACETATE
     Indication: LUNG NEOPLASM MALIGNANT
     Dosage: 120 MG
     Route: 065
     Dates: start: 20200127
  2. SOMATULINE DEPOT [Suspect]
     Active Substance: LANREOTIDE ACETATE
     Indication: LYMPHOMA
  3. SOMATULINE DEPOT [Suspect]
     Active Substance: LANREOTIDE ACETATE
     Indication: OFF LABEL USE

REACTIONS (8)
  - Bronchial secretion retention [Unknown]
  - Dyspnoea [Unknown]
  - Abdominal discomfort [Unknown]
  - Nausea [Unknown]
  - Hypoacusis [Unknown]
  - Chills [Unknown]
  - Off label use [Unknown]
  - Tonsillar hypertrophy [Unknown]

NARRATIVE: CASE EVENT DATE: 20200127
